FAERS Safety Report 7686484 (Version 7)
Quarter: 2013Q1

REPORT INFORMATION
  Report Type: Spontaneous
  Country: US (occurrence: US)
  Receive Date: 20101130
  Receipt Date: 20130128
  Transmission Date: 20140127
  Serious: Yes (Hospitalization)
  Sender: FDA-Public Use
  Company Number: US-BIOGENIDEC-2010BI040547

PATIENT
  Age: 53 Year
  Sex: Female

DRUGS (2)
  1. TYSABRI [Suspect]
     Indication: MULTIPLE SCLEROSIS
     Route: 042
     Dates: start: 20100122, end: 20111024
  2. TYSABRI [Suspect]
     Indication: MULTIPLE SCLEROSIS
     Route: 042
     Dates: start: 20120816

REACTIONS (18)
  - Multiple sclerosis [Not Recovered/Not Resolved]
  - Vision blurred [Not Recovered/Not Resolved]
  - Rash papular [Not Recovered/Not Resolved]
  - Muscle spasms [Recovered/Resolved]
  - Tremor [Recovered/Resolved]
  - Urinary tract infection [Recovered/Resolved]
  - Local swelling [Recovered/Resolved]
  - Foot fracture [Unknown]
  - Nerve injury [Unknown]
  - Panic attack [Unknown]
  - Injury associated with device [Unknown]
  - Fatigue [Recovered/Resolved]
  - Cerebrovascular accident [Recovered/Resolved]
  - Chest pain [Unknown]
  - Intracardiac thrombus [Unknown]
  - Rotator cuff syndrome [Recovered/Resolved]
  - Ear haemorrhage [Recovered/Resolved]
  - Ear pain [Recovered/Resolved]
